FAERS Safety Report 17020318 (Version 1)
Quarter: 2019Q4

REPORT INFORMATION
  Report Type: Spontaneous
  Country: KR (occurrence: KR)
  Receive Date: 20191112
  Receipt Date: 20191112
  Transmission Date: 20200122
  Serious: Yes (Hospitalization, Other)
  Sender: FDA-Public Use
  Company Number: KR-PFIZER INC-2019483105

PATIENT
  Sex: Female

DRUGS (12)
  1. CRIZOTINIB [Suspect]
     Active Substance: CRIZOTINIB
     Indication: NON-SMALL CELL LUNG CANCER
     Dosage: UNK
     Route: 048
     Dates: start: 201801, end: 201906
  2. SMECTA [Concomitant]
     Active Substance: MONTMORILLONITE
     Dosage: 1 DF (PACK), 3X/DAY
     Route: 048
  3. TAZOPERAN [PIPERACILLIN SODIUM] [Concomitant]
     Active Substance: PIPERACILLIN SODIUM
     Dosage: 4.5 G, 3X/DAY
     Route: 042
  4. SYNATURA [Concomitant]
     Dosage: 15 ML, 3X/DAY
     Route: 048
  5. MYCAMINE [Concomitant]
     Active Substance: MICAFUNGIN SODIUM
     Dosage: 50 MG, 1X/DAY
  6. SOLONDO [Concomitant]
     Active Substance: PREDNISOLONE
     Dosage: 10 MG, 1X/DAY
     Route: 048
  7. MOKTIN [Concomitant]
     Dosage: 200 MG, 3X/DAY
     Route: 048
  8. LANSTON [Concomitant]
     Active Substance: LANSOPRAZOLE
     Dosage: 15 MG, 1X/DAY
     Route: 048
  9. HERBEN [Concomitant]
     Active Substance: DILTIAZEM HYDROCHLORIDE
     Dosage: 30 MG, 3X/DAY
     Route: 048
  10. DILATREND [Concomitant]
     Active Substance: CARVEDILOL
     Dosage: 3.125 MG, 2X/DAY
     Route: 048
  11. MUCOSTEN [Concomitant]
     Dosage: 300 MG, 2X/DAY
  12. VENTOLIN [Concomitant]
     Active Substance: ALBUTEROL SULFATE
     Dosage: 2.5 MG, 4X/DAY

REACTIONS (3)
  - Osteomyelitis [Unknown]
  - Neoplasm progression [Unknown]
  - Dysphagia [Unknown]

NARRATIVE: CASE EVENT DATE: 201906
